FAERS Safety Report 19543252 (Version 2)
Quarter: 2021Q3

REPORT INFORMATION
  Report Type: Report from Study
  Country: RU (occurrence: RU)
  Receive Date: 20210714
  Receipt Date: 20210728
  Transmission Date: 20211014
  Serious: Yes (Death)
  Sender: FDA-Public Use
  Company Number: RU-ROCHE-2866400

PATIENT
  Age: 52 Year
  Sex: Male
  Weight: 77 kg

DRUGS (4)
  1. ATEZOLIZUMAB. [Suspect]
     Active Substance: ATEZOLIZUMAB
     Indication: BILE DUCT CANCER
     Dosage: ON 30/JUN/2021, HE RECEIVED ATEZOLIZUMAB THE MOST RECENT DOSE 1200 MG OF STUDY DRUG PRIOR TO AE (ADV
     Route: 041
     Dates: start: 20210630
  2. CISPLATIN. [Suspect]
     Active Substance: CISPLATIN
     Indication: BILE DUCT CANCER
     Dosage: ON 30/JUN/2021, HE RECEIVED CISPLATIN THE MOST RECENT DOSE 50 MG OF STUDY DRUG PRIOR TO AE (ADVERSE
     Route: 042
     Dates: start: 20210630
  3. BLINDED BEVACIZUMAB [Suspect]
     Active Substance: BEVACIZUMAB
     Indication: BILE DUCT CANCER
     Dosage: ON 30/JUN/2021, HE RECEIVED BLINDED BEVACIZUMAB THE MOST RECENT DOSE OF STUDY DRUG PRIOR TO AE (ADVE
     Route: 042
     Dates: start: 20210630
  4. GEMCITABINE. [Suspect]
     Active Substance: GEMCITABINE
     Indication: BILE DUCT CANCER
     Dosage: ON 30/JUN/2021, HE RECEIVED GEMCITABINE THE MOST RECENT DOSE 2000 MG OF STUDY DRUG PRIOR TO AE (ADVE
     Route: 042
     Dates: start: 20210630

REACTIONS (1)
  - Peritonitis [Fatal]

NARRATIVE: CASE EVENT DATE: 20210707
